FAERS Safety Report 4901014-5 (Version None)
Quarter: 2006Q1

REPORT INFORMATION
  Report Type: 
  Country: None (occurrence: None)
  Receive Date: 20060201
  Receipt Date: 20060112
  Transmission Date: 20060701
  Serious: Yes (Other)
  Sender: FDA-Public Use
  Company Number: DE200601001457

PATIENT
  Age: 39 Year
  Sex: Male
  Weight: 72 kg

DRUGS (2)
  1. CYMBALTA [Suspect]
     Indication: AFFECTIVE DISORDER
     Dosage: 120 MG , ORAL
     Dates: start: 20051213, end: 20051223
  2. EUNERPAN (MELPERONE HYROCHLORIDE) [Concomitant]

REACTIONS (1)
  - BLOOD CREATINE PHOSPHOKINASE INCREASED [None]
